FAERS Safety Report 8961083 (Version 1)
Quarter: 2012Q4

REPORT INFORMATION
  Report Type: 
  Country: US (occurrence: US)
  Receive Date: 20121212
  Receipt Date: 20121212
  Transmission Date: 20130627
  Serious: No
  Sender: FDA-Public Use
  Company Number: US-ASTRAZENECA-2012SE90072

PATIENT
  Sex: Female

DRUGS (4)
  1. SYMBICORT PMDI [Suspect]
     Indication: HYPERSENSITIVITY
     Dosage: Dose and Frequency unknown.
     Route: 055
  2. SYMBICORT PMDI [Suspect]
     Indication: DYSPNOEA
     Dosage: Dose and Frequency unknown.
     Route: 055
  3. CINCULAR [Concomitant]
     Indication: HYPERSENSITIVITY
  4. CINCULAR [Concomitant]
     Indication: DYSPNOEA

REACTIONS (3)
  - Adverse event [Unknown]
  - Off label use [Unknown]
  - Drug dose omission [Unknown]
